FAERS Safety Report 19903257 (Version 1)
Quarter: 2021Q4

REPORT INFORMATION
  Report Type: Spontaneous
  Country: US (occurrence: US)
  Receive Date: 20211001
  Receipt Date: 20211001
  Transmission Date: 20220303
  Serious: Yes (Life-Threatening, Other)
  Sender: FDA-Public Use
  Company Number: US-GE HEALTHCARE LIFE SCIENCES-2021CSU004846

PATIENT
  Age: 76 Year
  Sex: Male

DRUGS (8)
  1. VISIPAQUE [Suspect]
     Active Substance: IODIXANOL
     Indication: Angiogram
     Dosage: UNK UNK, SINGLE
     Route: 013
     Dates: start: 2020, end: 2020
  2. VISIPAQUE [Suspect]
     Active Substance: IODIXANOL
     Indication: Percutaneous coronary intervention
     Dosage: UNK UNK, SINGLE
     Route: 013
     Dates: start: 2021, end: 2021
  3. VISIPAQUE [Suspect]
     Active Substance: IODIXANOL
     Indication: Coronary artery disease
  4. VISIPAQUE [Suspect]
     Active Substance: IODIXANOL
     Indication: Cardiac failure
  5. VISIPAQUE [Suspect]
     Active Substance: IODIXANOL
     Indication: Coronary artery occlusion
  6. PREDNISONE [Concomitant]
     Active Substance: PREDNISONE
     Dosage: 60 MG X3 DOSES AT 13, 7 AND 1HOUR PRE-PROCEDURE
     Route: 048
     Dates: start: 2021, end: 2021
  7. DIPHENHYDRAMINE [Concomitant]
     Active Substance: DIPHENHYDRAMINE
     Dosage: 25 MG, SINGLE
     Route: 048
     Dates: start: 2021, end: 2021
  8. METHYLPREDNISOLONE [Concomitant]
     Active Substance: METHYLPREDNISOLONE
     Dosage: 120 MG, SINGLE
     Route: 042
     Dates: start: 2021, end: 2021

REACTIONS (2)
  - Hypotension [Recovered/Resolved]
  - Hypotension [Recovered/Resolved]

NARRATIVE: CASE EVENT DATE: 20200101
